FAERS Safety Report 10764070 (Version 1)
Quarter: 2015Q1

REPORT INFORMATION
  Report Type: Other
  Country: DE (occurrence: US)
  Receive Date: 20150204
  Receipt Date: 20150204
  Transmission Date: 20150721
  Serious: Yes (Other)
  Sender: FDA-Public Use
  Company Number: DE-ACTELION-A-US2015-112204

PATIENT

DRUGS (10)
  1. PHENYLEPHRINE HYDROCHLORIDE. [Concomitant]
     Active Substance: PHENYLEPHRINE HYDROCHLORIDE
     Indication: EXPOSURE DURING PREGNANCY
     Route: 064
  2. MILRINONE [Concomitant]
     Active Substance: MILRINONE
     Indication: EXPOSURE DURING PREGNANCY
     Dosage: UNK
     Route: 064
  3. FUROSEMIDE. [Concomitant]
     Active Substance: FUROSEMIDE
     Indication: EXPOSURE DURING PREGNANCY
     Dosage: UNK
     Route: 064
  4. VASOPRESSIN. [Concomitant]
     Active Substance: VASOPRESSIN
     Indication: EXPOSURE DURING PREGNANCY
     Dosage: UNK
  5. OXYTOCIN. [Concomitant]
     Active Substance: OXYTOCIN
     Indication: EXPOSURE DURING PREGNANCY
     Dosage: UNK
     Route: 064
  6. OXYGEN. [Concomitant]
     Active Substance: OXYGEN
     Route: 064
  7. HEPARIN [Concomitant]
     Active Substance: HEPARIN SODIUM
     Indication: EXPOSURE DURING PREGNANCY
     Route: 064
  8. LIDOCAINE. [Concomitant]
     Active Substance: LIDOCAINE
     Indication: EXPOSURE DURING PREGNANCY
     Dosage: UNK
     Route: 064
  9. VENTAVIS [Suspect]
     Active Substance: ILOPROST
     Indication: EXPOSURE DURING PREGNANCY
     Route: 064
  10. NITRIC OXIDE. [Concomitant]
     Active Substance: NITRIC OXIDE
     Indication: EXPOSURE DURING PREGNANCY
     Dosage: UNK
     Route: 064

REACTIONS (1)
  - Exposure during pregnancy [Unknown]
